FAERS Safety Report 10646220 (Version 2)
Quarter: 2014Q4

REPORT INFORMATION
  Report Type: Report from Study
  Country: CA (occurrence: CA)
  Receive Date: 20141211
  Receipt Date: 20141211
  Transmission Date: 20150529
  Serious: Yes (Other)
  Sender: FDA-Public Use
  Company Number: CA-AMGEN-CANSP2013071098

PATIENT
  Age: 57 Year
  Sex: Male

DRUGS (1)
  1. ENBREL [Suspect]
     Active Substance: ETANERCEPT
     Indication: PSORIATIC ARTHROPATHY
     Dosage: 50 MG, 2 TIMES/WK
     Route: 065
     Dates: start: 20070707

REACTIONS (5)
  - Frustration [Not Recovered/Not Resolved]
  - Joint swelling [Unknown]
  - Pain [Not Recovered/Not Resolved]
  - Diabetes mellitus [Unknown]
  - Mobility decreased [Not Recovered/Not Resolved]
